FAERS Safety Report 4816206-3 (Version None)
Quarter: 2005Q4

REPORT INFORMATION
  Report Type: 
  Country: None (occurrence: None)
  Receive Date: 20051028
  Receipt Date: 20051021
  Transmission Date: 20060501
  Serious: Yes (Other)
  Sender: FDA-Public Use
  Company Number: SUS1-2005-00787

PATIENT
  Age: 6 Year
  Sex: Male

DRUGS (2)
  1. ADDERALL XR UNK (DEXTROAMPHETAMINE SULFATE, DEXTROAMPHETAMINE SACCHARA [Suspect]
     Indication: ATTENTION DEFICIT/HYPERACTIVITY DISORDER
     Dosage: SEE IMAGE
     Route: 048
     Dates: start: 20050922, end: 20050926
  2. ADDERALL XR UNK (DEXTROAMPHETAMINE SULFATE, DEXTROAMPHETAMINE SACCHARA [Suspect]
     Indication: ATTENTION DEFICIT/HYPERACTIVITY DISORDER
     Dosage: SEE IMAGE
     Route: 048
     Dates: start: 20050927

REACTIONS (3)
  - AGITATION [None]
  - HALLUCINATION [None]
  - INSOMNIA [None]
